FAERS Safety Report 23645814 (Version 3)
Quarter: 2024Q2

REPORT INFORMATION
  Report Type: Spontaneous
  Country: JP (occurrence: JP)
  Receive Date: 20240319
  Receipt Date: 20240529
  Transmission Date: 20240715
  Serious: Yes (Other)
  Sender: FDA-Public Use
  Company Number: JP-TAKEDA-2024TUS024906

PATIENT
  Age: 65 Year
  Sex: Male

DRUGS (1)
  1. FOSRENOL [Suspect]
     Active Substance: LANTHANUM CARBONATE
     Indication: Chronic kidney disease
     Dosage: UNK
     Route: 048

REACTIONS (3)
  - Adenocarcinoma gastric [Unknown]
  - Blood loss anaemia [Unknown]
  - Product residue present [Unknown]
